FAERS Safety Report 14979041 (Version 13)
Quarter: 2021Q1

REPORT INFORMATION
  Report Type: Report from Study
  Country: GB (occurrence: GB)
  Receive Date: 20180606
  Receipt Date: 20210319
  Transmission Date: 20210419
  Serious: Yes (Hospitalization)
  Sender: FDA-Public Use
  Company Number: GB-PFIZER INC-2018221992

PATIENT
  Age: 31 Year
  Sex: Female

DRUGS (84)
  1. DOCUSATE SODIUM. [Concomitant]
     Active Substance: DOCUSATE SODIUM
     Indication: CONSTIPATION
     Dosage: 200 MG, 2X/DAY (0.5 DAY)
     Route: 048
     Dates: start: 201603, end: 20160405
  2. PARACETAMOL [Concomitant]
     Active Substance: ACETAMINOPHEN
     Indication: VOMITING
     Dosage: 1 G, UNK
     Route: 042
     Dates: start: 20160508, end: 20160508
  3. PARACETAMOL [Concomitant]
     Active Substance: ACETAMINOPHEN
     Indication: OVARIAN CYST
     Dosage: 1000 MG, 4X/DAY
     Route: 042
     Dates: start: 20160718, end: 201607
  4. AMOXICILLIN. [Concomitant]
     Active Substance: AMOXICILLIN
     Indication: NASOPHARYNGITIS
     Dosage: 500 MG, 3X/DAY
     Route: 048
     Dates: start: 20151007, end: 20151013
  5. AMOXICILLIN. [Concomitant]
     Active Substance: AMOXICILLIN
     Indication: LOWER RESPIRATORY TRACT INFECTION
     Dosage: 500 MG, 3X/DAY
     Route: 048
     Dates: start: 20160309, end: 20160312
  6. DIAZEPAM. [Concomitant]
     Active Substance: DIAZEPAM
     Indication: BACK PAIN
     Dosage: 2 MG, UNK
     Route: 048
     Dates: start: 20150629, end: 201603
  7. CYCLIZINE [Concomitant]
     Active Substance: CYCLIZINE
     Dosage: 50 MG, 3X/DAY
     Route: 048
     Dates: start: 201603, end: 201607
  8. SENNA [Concomitant]
     Active Substance: SENNA LEAF\SENNOSIDES\SENNOSIDES A AND B
     Dosage: 7.5 MG, 1X/DAY
     Route: 048
     Dates: start: 20160512, end: 20160601
  9. DOXORUBICIN [Suspect]
     Active Substance: DOXORUBICIN
     Indication: BREAST CANCER METASTATIC
     Dosage: 130 MG, EVERY 3 WEEKS
     Route: 042
     Dates: start: 20200128, end: 20200203
  10. BUSCOPAN [Concomitant]
     Active Substance: BUTYLSCOPOLAMINE BROMIDE
     Indication: DIARRHOEA
     Dosage: 20 MG, 3X/DAY (0.33 DAY)
     Route: 048
     Dates: start: 20150721, end: 201603
  11. DALTEPARIN [Concomitant]
     Active Substance: DALTEPARIN
     Dosage: 5000 IU, DAILY
     Route: 058
     Dates: start: 20200203, end: 20200205
  12. DOXYCYCLINE. [Concomitant]
     Active Substance: DOXYCYCLINE
     Dosage: 200 MG, UNK
     Route: 048
     Dates: start: 20150721, end: 20150721
  13. PARACETAMOL [Concomitant]
     Active Substance: ACETAMINOPHEN
     Dosage: 1000 MG, 4X/DAY (0.25 DAY)
     Route: 042
     Dates: start: 20190116, end: 20190120
  14. TAZOCIN [Concomitant]
     Active Substance: PIPERACILLIN SODIUM\TAZOBACTAM SODIUM
     Indication: LOWER RESPIRATORY TRACT INFECTION
     Dosage: 4.5 MG, 3X/DAY (0.33 DAY)
     Route: 042
     Dates: start: 20160304, end: 20160309
  15. METOCLOPRAMIDE. [Concomitant]
     Active Substance: METOCLOPRAMIDE
     Indication: VOMITING
     Dosage: 10 MG, 2X/DAY
     Route: 048
     Dates: start: 20150326, end: 201505
  16. LORAZEPAM. [Concomitant]
     Active Substance: LORAZEPAM
     Dosage: 1 MG, DAILY
     Route: 048
     Dates: start: 201809
  17. LIDOCAINE. [Concomitant]
     Active Substance: LIDOCAINE
     Indication: BACK PAIN
     Dosage: PATCH
     Route: 062
     Dates: start: 20151109, end: 201603
  18. MACROGOL [Concomitant]
     Active Substance: POLYETHYLENE GLYCOLS
     Dosage: 1 DF, 2X/DAY (SACHET POWDER)
     Route: 048
     Dates: start: 201505, end: 201506
  19. CYCLIZINE [Concomitant]
     Active Substance: CYCLIZINE
     Dosage: 50 MG, UNK
     Route: 048
     Dates: start: 20181220, end: 20181220
  20. CAPECITABINE. [Suspect]
     Active Substance: CAPECITABINE
     Indication: BREAST CANCER METASTATIC
     Dosage: 2000 MG, 2X/DAY (0.5 DAY)
     Route: 048
     Dates: start: 20190319, end: 20191224
  21. DALTEPARIN [Concomitant]
     Active Substance: DALTEPARIN
     Dosage: 5000 IU, UNK
     Route: 058
     Dates: start: 20190116, end: 20190119
  22. DALTEPARIN [Concomitant]
     Active Substance: DALTEPARIN
     Dosage: UNK
     Route: 058
     Dates: start: 20150504, end: 20151027
  23. GABAPENTIN. [Concomitant]
     Active Substance: GABAPENTIN
     Dosage: 300 MG, 3X/DAY (0.33 DAY)
     Route: 048
     Dates: start: 201304, end: 20200918
  24. HALOPERIDOL. [Concomitant]
     Active Substance: HALOPERIDOL
     Dosage: 1.5 MG, UNK
     Route: 048
     Dates: start: 201603, end: 201603
  25. CYCLIZINE [Concomitant]
     Active Substance: CYCLIZINE
     Dosage: UNK, AS NEEDED
     Route: 042
     Dates: start: 20190119, end: 20190122
  26. AMITRIPTYLINE [Concomitant]
     Active Substance: AMITRIPTYLINE
     Indication: ANXIETY
     Dosage: 20 MG, UNK
     Route: 048
     Dates: start: 20160228, end: 20160302
  27. AMITRIPTYLINE [Concomitant]
     Active Substance: AMITRIPTYLINE
     Dosage: 150 MG
     Route: 048
     Dates: start: 201809
  28. COCODAMOL [Concomitant]
     Active Substance: ACETAMINOPHEN\CODEINE PHOSPHATE
     Indication: CHOLECYSTITIS
     Dosage: 500 MG, UNK
     Route: 048
     Dates: start: 20151109, end: 201601
  29. LORAZEPAM. [Concomitant]
     Active Substance: LORAZEPAM
     Dosage: 1 MG, 1X/DAY
     Route: 048
     Dates: start: 20160512, end: 201611
  30. LEVOMEPROMAZINE [Concomitant]
     Active Substance: LEVOMEPROMAZINE
     Dosage: 6.25 MG
     Route: 042
     Dates: start: 20160509, end: 20160509
  31. BECLOMETHASONE [Concomitant]
     Active Substance: BECLOMETHASONE
     Indication: ASTHMA
     Dosage: UNK, AEROSOL IH (INHALED)
     Dates: start: 201901
  32. CREON [Concomitant]
     Active Substance: PANCRELIPASE AMYLASE\PANCRELIPASE LIPASE\PANCRELIPASE PROTEASE
     Dosage: UNK
     Route: 048
     Dates: start: 201809
  33. SENNA [Concomitant]
     Active Substance: SENNA LEAF\SENNOSIDES\SENNOSIDES A AND B
     Dosage: DAILY
     Route: 048
     Dates: start: 201603, end: 20160405
  34. TRASTUZUMAB EMTANSINE [Suspect]
     Active Substance: ADO-TRASTUZUMAB EMTANSINE
     Dosage: 280 MG, EVERY 3 WEEKS
     Route: 042
     Dates: start: 20160421, end: 20161124
  35. PERTUZUMAB. [Suspect]
     Active Substance: PERTUZUMAB
     Dosage: 420 MG, UNK
     Route: 042
     Dates: start: 20150416, end: 20160211
  36. CHLORHEXIDINE [Concomitant]
     Active Substance: CHLORHEXIDINE
     Indication: MOUTH ULCERATION
     Dosage: 10 ML, 2X/DAY
     Route: 048
     Dates: start: 20200205
  37. DOXYCYCLINE. [Concomitant]
     Active Substance: DOXYCYCLINE
     Dosage: 100 MG, UNK
     Route: 048
     Dates: start: 20150722, end: 20150728
  38. PARACETAMOL [Concomitant]
     Active Substance: ACETAMINOPHEN
     Dosage: 1000 MG, 4X/DAY
     Route: 042
     Dates: start: 20181220, end: 20181220
  39. TAZOCIN [Concomitant]
     Active Substance: PIPERACILLIN SODIUM\TAZOBACTAM SODIUM
     Dosage: 4.5 G, 3 TIMES A WEEK (0.33 WEEK)
     Route: 042
     Dates: start: 20200204, end: 20200206
  40. PARACETAMOL [Concomitant]
     Active Substance: ACETAMINOPHEN
     Dosage: 1 G, 4X/DAY
     Route: 048
     Dates: start: 20150918, end: 20150919
  41. METOCLOPRAMIDE. [Concomitant]
     Active Substance: METOCLOPRAMIDE
     Dosage: 10 PG
     Route: 048
     Dates: start: 201603, end: 201607
  42. DOCUSATE [Concomitant]
     Active Substance: DOCUSATE
     Indication: CONSTIPATION
     Dosage: 200 MG, 2X/DAY
     Route: 048
     Dates: start: 201603, end: 20160405
  43. LEVOMEPROMAZINE [Concomitant]
     Active Substance: LEVOMEPROMAZINE
     Dosage: 6.25 MG, 3X/DAY
     Route: 042
     Dates: start: 20160509, end: 20160601
  44. SENNA [Concomitant]
     Active Substance: SENNA LEAF\SENNOSIDES\SENNOSIDES A AND B
     Indication: CONSTIPATION
     Dosage: 7.5 MG
     Route: 048
     Dates: start: 201505, end: 201505
  45. ORAMORPH SR SUSTAINED RELEASE [Concomitant]
     Active Substance: MORPHINE SULFATE
     Indication: BACK PAIN
     Dosage: 10 MG LIQUID
     Dates: start: 20150918, end: 20150919
  46. TRASTUZUMAB EMTANSINE [Suspect]
     Active Substance: ADO-TRASTUZUMAB EMTANSINE
     Indication: BREAST CANCER METASTATIC
     Dosage: 350 MG, EVERY 3 WEEKS
     Route: 042
     Dates: start: 20160303, end: 20160421
  47. TRASTUZUMAB/VORHYALURONIDASE ALFA [Suspect]
     Active Substance: HYALURONIDASE (HUMAN RECOMBINANT)\TRASTUZUMAB
     Indication: BREAST CANCER METASTATIC
     Dosage: 600 MG, EVERY 3 WEEKS
     Route: 058
     Dates: start: 20150326, end: 20160211
  48. CHLORHEXIDINE [Concomitant]
     Active Substance: CHLORHEXIDINE
     Indication: MUCOSAL INFLAMMATION
     Dosage: SOLUTION
     Route: 048
     Dates: start: 201603, end: 20160401
  49. MACROGOL [Concomitant]
     Active Substance: POLYETHYLENE GLYCOLS
     Dosage: 1 DF, 2X/DAY
     Route: 048
     Dates: start: 20160718, end: 20160722
  50. ZOMORPH [Concomitant]
     Active Substance: MORPHINE SULFATE
     Indication: BACK PAIN
     Dosage: 20 MG, UNK
     Route: 048
     Dates: start: 20150710, end: 201509
  51. PERTUZUMAB. [Suspect]
     Active Substance: PERTUZUMAB
     Indication: BREAST CANCER METASTATIC
     Dosage: LOADING DOSE AS PER PROTOCOL
     Route: 042
     Dates: start: 20150326
  52. DALTEPARIN [Concomitant]
     Active Substance: DALTEPARIN
     Indication: PERIPHERAL SWELLING
     Dosage: 18000 UNITS
     Route: 058
     Dates: start: 20150504, end: 20151027
  53. DALTEPARIN [Concomitant]
     Active Substance: DALTEPARIN
     Dosage: 5000 IU, 1X/DAY
     Route: 058
     Dates: start: 20160508, end: 20160516
  54. TRIMETHOPRIM. [Concomitant]
     Active Substance: TRIMETHOPRIM
     Indication: URINARY TRACT INFECTION
     Dosage: 200 MG, 2X/DAY
     Route: 048
     Dates: start: 20150604, end: 20150606
  55. NYSTATIN. [Concomitant]
     Active Substance: NYSTATIN
     Dosage: 100000 U ; TIME INTERVAL: 0.25 D
     Route: 048
     Dates: start: 20160516, end: 20160616
  56. OMEPRAZOLE. [Concomitant]
     Active Substance: OMEPRAZOLE
     Indication: GASTROOESOPHAGEAL REFLUX DISEASE
     Dosage: 20 MG, UNK
     Route: 048
     Dates: start: 201505, end: 201612
  57. DIFFLAM [BENZYDAMINE] [Concomitant]
     Active Substance: BENZYDAMINE
     Indication: MUCOSAL INFLAMMATION
     Dosage: SOLUTION
     Route: 048
     Dates: start: 201603, end: 20160330
  58. TAZOCIN [Concomitant]
     Active Substance: PIPERACILLIN SODIUM\TAZOBACTAM SODIUM
     Indication: C-REACTIVE PROTEIN INCREASED
     Dosage: 4.5 MG, 3X/DAY (0.33 DAY)
     Route: 042
     Dates: start: 20181222, end: 20181222
  59. CYCLIZINE [Concomitant]
     Active Substance: CYCLIZINE
     Indication: NAUSEA
     Dosage: LIQUID
     Route: 042
     Dates: start: 20160508, end: 20160509
  60. METOCLOPRAMIDE. [Concomitant]
     Active Substance: METOCLOPRAMIDE
     Dosage: 10 MG, 3X/DAY
     Route: 065
     Dates: start: 20150813, end: 201512
  61. METOCLOPRAMIDE. [Concomitant]
     Active Substance: METOCLOPRAMIDE
     Dosage: 10 MG, 3X/DAY
     Route: 042
     Dates: start: 20160719, end: 20160722
  62. CYCLIZINE [Concomitant]
     Active Substance: CYCLIZINE
     Dosage: 50 MG, UNK
     Route: 048
     Dates: start: 201809
  63. LEVOMEPROMAZINE [Concomitant]
     Active Substance: LEVOMEPROMAZINE
     Dosage: 6.25 MG
     Route: 042
     Dates: start: 20190116, end: 20190117
  64. CO?AMOXICLAV [AMOXICILLIN;CLAVULANATE POTASSIUM] [Concomitant]
     Active Substance: AMOXICILLIN\CLAVULANATE POTASSIUM
     Dosage: 500 MG
     Route: 048
     Dates: start: 20190121, end: 20190123
  65. BRUFEN [IBUPROFEN] [Concomitant]
     Active Substance: IBUPROFEN
     Indication: BACK PAIN
     Dosage: FREQ:.33 D;
     Route: 048
     Dates: start: 20150509, end: 201511
  66. DALTEPARIN [Concomitant]
     Active Substance: DALTEPARIN
     Dosage: UNK, DAILY
     Route: 058
     Dates: start: 20160717, end: 20160722
  67. DOCUSATE SODIUM. [Concomitant]
     Active Substance: DOCUSATE SODIUM
     Dosage: 100 MG, 3X/DAY
     Route: 048
     Dates: start: 20160516, end: 20160601
  68. DULOXETINE. [Concomitant]
     Active Substance: DULOXETINE
     Indication: ANXIETY
     Dosage: 60 MG, 2X/DAY (0.5 DAY)
     Route: 048
     Dates: start: 201603, end: 201703
  69. CODEINE [Concomitant]
     Active Substance: CODEINE
     Dosage: 15 G, UNK
     Route: 048
     Dates: start: 201504, end: 201601
  70. SALBUTAMOL [Concomitant]
     Active Substance: ALBUTEROL
     Indication: ASTHMA
     Dosage: AEROSOLIH (INHALED), AS NEEDED (AEROSOL INHALED)
     Route: 048
     Dates: start: 201901
  71. TRAMADOL. [Concomitant]
     Active Substance: TRAMADOL
     Indication: PAIN
     Dosage: 50 MG, UNK
     Route: 048
     Dates: start: 20181220, end: 20181221
  72. ORAMORPH SR SUSTAINED RELEASE [Concomitant]
     Active Substance: MORPHINE SULFATE
     Dosage: 20 MG LIQUID
     Route: 048
     Dates: start: 20150513, end: 20150518
  73. TRASTUZUMAB EMTANSINE [Suspect]
     Active Substance: ADO-TRASTUZUMAB EMTANSINE
     Dosage: 290 MG, EVERY 3 WEEKS
     Route: 042
     Dates: start: 20170209, end: 20171123
  74. TRASTUZUMAB EMTANSINE [Suspect]
     Active Substance: ADO-TRASTUZUMAB EMTANSINE
     Dosage: 290 MG, EVERY 3 WEEKS
     Route: 042
     Dates: start: 20180118
  75. BUSCOPAN [Concomitant]
     Active Substance: BUTYLSCOPOLAMINE BROMIDE
     Dosage: 10 MG, UNK
     Route: 048
     Dates: start: 20160405, end: 201605
  76. DOCUSATE SODIUM. [Concomitant]
     Active Substance: DOCUSATE SODIUM
     Dosage: 100 MG, 3X/DAY
     Route: 048
     Dates: start: 20160405, end: 20160516
  77. HALOPERIDOL. [Concomitant]
     Active Substance: HALOPERIDOL
     Indication: ANXIETY
     Dosage: 1.5 MG, UNK
     Route: 048
     Dates: start: 200109
  78. CYCLIZINE [Concomitant]
     Active Substance: CYCLIZINE
     Dosage: 50 MG, 3X/DAY
     Route: 042
     Dates: start: 20160717, end: 20160718
  79. PARACETAMOL [Concomitant]
     Active Substance: ACETAMINOPHEN
     Indication: OVARIAN CYST
     Dosage: 1000 G, UNK
     Route: 048
     Dates: start: 201504, end: 20200918
  80. LORAZEPAM. [Concomitant]
     Active Substance: LORAZEPAM
     Indication: ANXIETY
     Dosage: 1 MG, 3X/DAY
     Route: 048
     Dates: start: 201603, end: 201603
  81. DICLOFENAC [Concomitant]
     Active Substance: DICLOFENAC
     Indication: BACK PAIN
     Dosage: 50 MG, UNK
     Route: 048
     Dates: start: 20150721, end: 201508
  82. PACLITAXEL. [Suspect]
     Active Substance: PACLITAXEL
     Indication: BREAST CANCER METASTATIC
     Dosage: 183 MG, WEEKLY
     Route: 042
     Dates: start: 20150326, end: 20150812
  83. HALOPERIDOL. [Concomitant]
     Active Substance: HALOPERIDOL
     Indication: ANXIETY
     Dosage: 5 MG, 1X/DAY
     Route: 058
     Dates: start: 20160509, end: 201607
  84. NYSTATIN. [Concomitant]
     Active Substance: NYSTATIN
     Indication: MUCOSAL INFLAMMATION
     Dosage: 100000 U ; TIME INTERVAL: 0.25 D
     Dates: start: 201603, end: 20160330

REACTIONS (42)
  - Back pain [Recovered/Resolved with Sequelae]
  - Lower respiratory tract infection [Recovered/Resolved]
  - Rhinorrhoea [Recovered/Resolved]
  - Fatigue [Not Recovered/Not Resolved]
  - Anaemia [Recovered/Resolved]
  - Vomiting [Recovered/Resolved]
  - Diarrhoea [Recovered/Resolved]
  - Abdominal pain [Unknown]
  - Nasopharyngitis [Unknown]
  - Abdominal pain upper [Recovered/Resolved with Sequelae]
  - Abdominal pain [Recovered/Resolved]
  - Mucosal inflammation [Recovered/Resolved]
  - Nausea [Not Recovered/Not Resolved]
  - Alanine aminotransferase increased [Recovered/Resolved]
  - Headache [Recovered/Resolved]
  - Peripheral swelling [Recovered/Resolved]
  - Dizziness [Not Recovered/Not Resolved]
  - Diarrhoea [Recovered/Resolved]
  - Vomiting [Recovered/Resolved]
  - Vomiting [Recovered/Resolved]
  - Pain [Recovering/Resolving]
  - Depressed mood [Not Recovered/Not Resolved]
  - Insomnia [Not Recovered/Not Resolved]
  - Viral infection [Recovered/Resolved]
  - Hypoaesthesia [Recovered/Resolved]
  - Headache [Recovered/Resolved]
  - Back pain [Not Recovered/Not Resolved]
  - Nausea [Not Recovered/Not Resolved]
  - Viral infection [Recovered/Resolved]
  - Anxiety [Not Recovered/Not Resolved]
  - Abdominal pain [Recovered/Resolved]
  - Diarrhoea [Recovered/Resolved]
  - Urinary tract infection [Recovered/Resolved]
  - Gingival bleeding [Recovered/Resolved]
  - Constipation [Unknown]
  - Urinary tract infection [Recovered/Resolved with Sequelae]
  - Gastroenteritis viral [Recovered/Resolved]
  - Abdominal pain [Recovered/Resolved]
  - Gastrooesophageal reflux disease [Not Recovered/Not Resolved]
  - Pain [Recovered/Resolved]
  - Fatigue [Not Recovered/Not Resolved]
  - Nausea [Recovered/Resolved]

NARRATIVE: CASE EVENT DATE: 201505
